FAERS Safety Report 7773505-3 (Version None)
Quarter: 2011Q3

REPORT INFORMATION
  Report Type: 
  Country: None (occurrence: None)
  Receive Date: 20110922
  Receipt Date: 20110912
  Transmission Date: 20111222
  Serious: Yes (Hospitalization, Other)
  Sender: FDA-Public Use
  Company Number: US-BAXTER-2011BH029067

PATIENT
  Sex: Male

DRUGS (1)
  1. DIANEAL [Suspect]
     Indication: PERITONEAL DIALYSIS
     Route: 033
     Dates: start: 20070101

REACTIONS (5)
  - PULMONARY EMBOLISM [None]
  - INTESTINAL OBSTRUCTION [None]
  - EATING DISORDER SYMPTOM [None]
  - HYPOTENSION [None]
  - DYSPNOEA [None]
